FAERS Safety Report 8481533-8 (Version None)
Quarter: 2012Q2

REPORT INFORMATION
  Report Type: 
  Country: None (occurrence: None)
  Receive Date: 20120619
  Receipt Date: 20120613
  Transmission Date: 20120825
  Serious: Yes (Death, Hospitalization, Other)
  Sender: FDA-Public Use
  Company Number: 2011SP051883

PATIENT
  Age: 72 Year
  Sex: Female
  Weight: 103 kg

DRUGS (7)
  1. ZIPRASIDONE HYDROCHLORIDE [Suspect]
     Indication: SCHIZOAFFECTIVE DISORDER
     Dosage: 40 MG;BID;PO
     Route: 048
     Dates: start: 20050101, end: 20111023
  2. FERRO DURETTER [Concomitant]
  3. LITHIUM CITRATE [Suspect]
     Indication: SCHIZOAFFECTIVE DISORDER
     Dosage: PO
     Route: 048
     Dates: start: 20050101, end: 20111023
  4. ALPRAZOLAM [Concomitant]
  5. MIRTAZAPINE [Suspect]
     Indication: SCHIZOAFFECTIVE DISORDER
     Dosage: 30 MG;QD;PO
     Route: 048
     Dates: start: 20110101, end: 20111023
  6. K CL TAB [Concomitant]
  7. ESCITALOPRAM OXALATE [Suspect]
     Indication: SCHIZOAFFECTIVE DISORDER
     Dosage: 30 MG;QD;PO
     Route: 048
     Dates: start: 20050101, end: 20111023

REACTIONS (18)
  - CARDIAC HYPERTROPHY [None]
  - RENAL FAILURE ACUTE [None]
  - DYSPNOEA [None]
  - CONSTIPATION [None]
  - NEUROLEPTIC MALIGNANT SYNDROME [None]
  - SEROTONIN SYNDROME [None]
  - FALL [None]
  - HEPATIC ENZYME INCREASED [None]
  - URINARY TRACT INFECTION [None]
  - DIALYSIS [None]
  - RHABDOMYOLYSIS [None]
  - CARDIAC ENZYMES INCREASED [None]
  - HYPERDYNAMIC LEFT VENTRICLE [None]
  - HUMERUS FRACTURE [None]
  - LACTIC ACIDOSIS [None]
  - LACUNAR INFARCTION [None]
  - ORGAN FAILURE [None]
  - HEPATIC CIRRHOSIS [None]
